FAERS Safety Report 5878193-9 (Version None)
Quarter: 2008Q3

REPORT INFORMATION
  Report Type: 
  Country: None (occurrence: None)
  Receive Date: 20080911
  Receipt Date: 20080904
  Transmission Date: 20090109
  Serious: Yes (Other)
  Sender: FDA-Public Use
  Company Number: PHHY2008BR20182

PATIENT
  Sex: Female
  Weight: 73 kg

DRUGS (3)
  1. EXELON [Suspect]
     Dosage: 18 MG
     Route: 062
  2. MEMANTINE HCL [Concomitant]
  3. SEROQUEL [Concomitant]

REACTIONS (6)
  - DEHYDRATION [None]
  - DIARRHOEA [None]
  - DYSPHAGIA [None]
  - SOMNOLENCE [None]
  - SOPOR [None]
  - VOMITING [None]
